FAERS Safety Report 17807505 (Version 2)
Quarter: 2020Q2

REPORT INFORMATION
  Report Type: Spontaneous
  Country: US (occurrence: US)
  Receive Date: 20200520
  Receipt Date: 20200527
  Transmission Date: 20200714
  Serious: Yes (Other)
  Sender: FDA-Public Use
  Company Number: US-GLAXOSMITHKLINE-US2020AMR085225

PATIENT
  Age: 64 Year
  Sex: Female

DRUGS (1)
  1. ARNUITY ELLIPTA [Suspect]
     Active Substance: FLUTICASONE FUROATE
     Indication: PRODUCT USED FOR UNKNOWN INDICATION
     Dosage: UNK
     Route: 065
     Dates: start: 2019

REACTIONS (6)
  - Connective tissue disorder [Unknown]
  - Cardiac pacemaker insertion [Unknown]
  - Atrioventricular block second degree [Unknown]
  - Lung opacity [Unknown]
  - Myocardial fibrosis [Unknown]
  - Cardiac failure congestive [Unknown]
